FAERS Safety Report 4959268-5 (Version None)
Quarter: 2006Q1

REPORT INFORMATION
  Report Type: 
  Country: None (occurrence: None)
  Receive Date: 20060331
  Receipt Date: 20041103
  Transmission Date: 20060701
  Serious: Yes (Life-Threatening, Hospitalization)
  Sender: FDA-Public Use
  Company Number: US-SANOFI-SYNTHELABO-A03200403696

PATIENT
  Age: 56 Year
  Sex: Female
  Weight: 58 kg

DRUGS (4)
  1. ELOXATIN [Suspect]
     Indication: COLON CANCER METASTATIC
     Route: 042
     Dates: start: 20040825, end: 20040825
  2. AVASTIN [Suspect]
     Indication: COLON CANCER METASTATIC
     Dosage: UNK
     Route: 042
     Dates: start: 20040825, end: 20040825
  3. FLUOROURACIL [Concomitant]
     Route: 042
     Dates: start: 20040801, end: 20040801
  4. LEUCOVORIN [Concomitant]
     Route: 042
     Dates: start: 20040801, end: 20040801

REACTIONS (14)
  - ABDOMINAL DISCOMFORT [None]
  - ACUTE MYELOID LEUKAEMIA [None]
  - ANAEMIA [None]
  - COLON CANCER METASTATIC [None]
  - HAEMOGLOBIN DECREASED [None]
  - HYPOREFLEXIA [None]
  - LEUKOPENIA [None]
  - MALIGNANT NEOPLASM PROGRESSION [None]
  - NEUROPATHY PERIPHERAL [None]
  - PLATELET COUNT DECREASED [None]
  - PYREXIA [None]
  - RASH [None]
  - THROMBOCYTOPENIA [None]
  - VIRAL INFECTION [None]
